FAERS Safety Report 7795464-X (Version None)
Quarter: 2011Q4

REPORT INFORMATION
  Report Type: 
  Country: None (occurrence: None)
  Receive Date: 20111004
  Receipt Date: 20110926
  Transmission Date: 20120403
  Serious: Yes (Death)
  Sender: FDA-Public Use
  Company Number: TR-ACTELION-A-CH2011-54487

PATIENT
  Age: 3 Year
  Sex: Male

DRUGS (1)
  1. TRACLEER [Suspect]
     Indication: PULMONARY ARTERIAL HYPERTENSION
     Dosage: 7.812 MG, BID
     Route: 048
     Dates: start: 20110901, end: 20110901

REACTIONS (2)
  - DISEASE PROGRESSION [None]
  - PULMONARY ARTERIAL HYPERTENSION [None]
